FAERS Safety Report 7642073-9 (Version None)
Quarter: 2011Q3

REPORT INFORMATION
  Report Type: 
  Country: None (occurrence: None)
  Receive Date: 20110728
  Receipt Date: 20110714
  Transmission Date: 20111222
  Serious: Yes (Hospitalization, Other)
  Sender: FDA-Public Use
  Company Number: CO-ELI_LILLY_AND_COMPANY-CO201106001194

PATIENT
  Age: 68 Year
  Sex: Female

DRUGS (9)
  1. SCHERISOLON [Concomitant]
     Dosage: UNK
     Route: 065
  2. HYDROCHLOROTHIAZIDE [Concomitant]
     Dosage: UNK
     Route: 065
  3. ENALAPRIL MALEATE [Concomitant]
     Dosage: UNK
     Route: 065
  4. LEVOTHYROXINE SODIUM [Concomitant]
     Dosage: UNK
     Route: 065
  5. FORTEO [Suspect]
     Indication: OSTEOPOROSIS
     Dosage: 20 UG, QD
     Route: 058
     Dates: start: 20110301
  6. AMLODIPINE BESYLATE [Concomitant]
     Dosage: UNK
     Route: 065
  7. AZATHIOPRINE [Concomitant]
     Indication: COLITIS
  8. CALCIUM +VIT D [Concomitant]
     Indication: SUPPLEMENTATION THERAPY
     Dosage: UNK
     Route: 065
  9. MIACALCIN [Concomitant]
     Dosage: UNK
     Route: 065

REACTIONS (6)
  - LIVER INJURY [None]
  - DEPRESSED MOOD [None]
  - DEHYDRATION [None]
  - DECREASED APPETITE [None]
  - DIARRHOEA [None]
  - VOMITING [None]
